FAERS Safety Report 20520780 (Version 2)
Quarter: 2022Q1

REPORT INFORMATION
  Report Type: Spontaneous
  Country: US (occurrence: US)
  Receive Date: 20220225
  Receipt Date: 20220331
  Transmission Date: 20220423
  Serious: Yes (Death, Other)
  Sender: FDA-Public Use
  Company Number: US-PFIZER INC-202200316921

PATIENT
  Age: 55 Year
  Sex: Male
  Weight: 89.36 kg

DRUGS (2)
  1. TOZINAMERAN [Suspect]
     Active Substance: TOZINAMERAN
     Indication: COVID-19 immunisation
     Dosage: DOSE 3 (BOOSTER), SINGLE
     Dates: start: 2021, end: 2021
  2. RAPAMUNE [Suspect]
     Active Substance: SIROLIMUS
     Indication: Prophylaxis against transplant rejection
     Dosage: 1 MG

REACTIONS (4)
  - Renal failure [Fatal]
  - Respiratory failure [Fatal]
  - Drug ineffective [Fatal]
  - COVID-19 [Fatal]

NARRATIVE: CASE EVENT DATE: 20220112
